FAERS Safety Report 7323235-7 (Version None)
Quarter: 2011Q1

REPORT INFORMATION
  Report Type: 
  Country: None (occurrence: None)
  Receive Date: 20110217
  Receipt Date: 20110207
  Transmission Date: 20110831
  Serious: Yes (Hospitalization)
  Sender: FDA-Public Use
  Company Number: CIP11000267

PATIENT
  Age: 61 Year
  Sex: Female

DRUGS (1)
  1. ACTONEL [Suspect]
     Indication: OSTEOPOROSIS
     Dosage: 35 MG TAKEN ONE TIME ONLY, ORAL
     Route: 048
     Dates: start: 20101223, end: 20101223

REACTIONS (7)
  - TINNITUS [None]
  - PYREXIA [None]
  - CHILLS [None]
  - HEADACHE [None]
  - NAUSEA [None]
  - MYALGIA [None]
  - DIZZINESS [None]
